FAERS Safety Report 5684967-X (Version None)
Quarter: 2008Q1

REPORT INFORMATION
  Report Type: 
  Country: None (occurrence: None)
  Receive Date: 20080328
  Receipt Date: 20080131
  Transmission Date: 20080703
  Serious: Yes (Other)
  Sender: FDA-Public Use
  Company Number: US-BRISTOL-MYERS SQUIBB COMPANY-14060735

PATIENT

DRUGS (3)
  1. ERBITUX [Suspect]
  2. BENADRYL [Concomitant]
     Route: 042
  3. DECADRON [Concomitant]
     Route: 042

REACTIONS (1)
  - INFUSION RELATED REACTION [None]
